FAERS Safety Report 13307311 (Version 1)
Quarter: 2017Q1

REPORT INFORMATION
  Report Type: Report from Study
  Country: US (occurrence: US)
  Receive Date: 20170308
  Receipt Date: 20170308
  Transmission Date: 20170428
  Serious: Yes (Hospitalization, Other)
  Sender: FDA-Public Use
  Company Number: US-ASTRAZENECA-2016SE62468

PATIENT
  Age: 22311 Day
  Sex: Female
  Weight: 45.8 kg

DRUGS (5)
  1. BRILINTA [Suspect]
     Active Substance: TICAGRELOR
     Indication: MYOCARDIAL INFARCTION
     Route: 048
  2. BRILINTA [Suspect]
     Active Substance: TICAGRELOR
     Indication: BLOOD PRESSURE ABNORMAL
     Route: 048
  3. BRILINTA [Suspect]
     Active Substance: TICAGRELOR
     Indication: MYOCARDIAL INFARCTION
     Route: 048
     Dates: start: 201607
  4. ASPIRIN. [Concomitant]
     Active Substance: ASPIRIN
  5. BRILINTA [Suspect]
     Active Substance: TICAGRELOR
     Indication: BLOOD PRESSURE ABNORMAL
     Route: 048
     Dates: start: 201607

REACTIONS (8)
  - Weight decreased [Unknown]
  - Product use issue [Unknown]
  - Memory impairment [Recovering/Resolving]
  - Myocardial infarction [Unknown]
  - Head injury [Recovering/Resolving]
  - Fall [Unknown]
  - Off label use [Unknown]
  - Craniocerebral injury [Recovering/Resolving]

NARRATIVE: CASE EVENT DATE: 201607
